FAERS Safety Report 22100264 (Version 1)
Quarter: 2023Q1

REPORT INFORMATION
  Report Type: Spontaneous
  Country: GB (occurrence: GB)
  Receive Date: 20230315
  Receipt Date: 20230315
  Transmission Date: 20230418
  Serious: Yes (Other)
  Sender: FDA-Public Use
  Company Number: GB-MHRA-MED-202303091818480800-LHVFW

PATIENT
  Age: 46 Year
  Sex: Female

DRUGS (2)
  1. TYSABRI [Suspect]
     Active Substance: NATALIZUMAB
     Indication: Relapsing-remitting multiple sclerosis
     Route: 050
  2. VITAMIN D SUBSTANCES [Concomitant]
     Indication: Product used for unknown indication
     Route: 050

REACTIONS (2)
  - Biopsy tongue [Recovered/Resolved]
  - Dysplasia [Unknown]

NARRATIVE: CASE EVENT DATE: 20230202
